FAERS Safety Report 19367059 (Version 3)
Quarter: 2022Q4

REPORT INFORMATION
  Report Type: Spontaneous
  Country: US (occurrence: US)
  Receive Date: 20210603
  Receipt Date: 20221215
  Transmission Date: 20230113
  Serious: Yes (Hospitalization, Other)
  Sender: FDA-Public Use
  Company Number: US-PFIZER INC-2021593026

PATIENT
  Age: 70 Year
  Sex: Female
  Weight: 83.6 kg

DRUGS (1)
  1. IBRANCE [Suspect]
     Active Substance: PALBOCICLIB
     Indication: Breast cancer female
     Dosage: 125 MG
     Dates: start: 2014

REACTIONS (3)
  - Pneumonia [Unknown]
  - Choking [Unknown]
  - Cough [Unknown]
